FAERS Safety Report 6549790-2 (Version None)
Quarter: 2010Q1

REPORT INFORMATION
  Report Type: 
  Country: None (occurrence: None)
  Receive Date: 20100125
  Receipt Date: 20100118
  Transmission Date: 20100710
  Serious: Yes (Death, Other)
  Sender: FDA-Public Use
  Company Number: US-TEVA-221252USA

PATIENT
  Sex: Male

DRUGS (2)
  1. CARBAMAZEPINE 200 MG TABLETS [Suspect]
     Indication: CONVULSION
  2. PROPACET 100 [Suspect]
     Indication: PROCEDURAL PAIN

REACTIONS (3)
  - DRUG INTERACTION [None]
  - DRUG TOXICITY [None]
  - MEDICATION ERROR [None]
